FAERS Safety Report 9134431 (Version 1)
Quarter: 2013Q1

REPORT INFORMATION
  Report Type: Report from Study
  Country: CO (occurrence: CO)
  Receive Date: 20130304
  Receipt Date: 20130304
  Transmission Date: 20140127
  Serious: Yes (Hospitalization, Disabling)
  Sender: FDA-Public Use
  Company Number: CO-SANOFI-AVENTIS-2013SA018573

PATIENT
  Age: 68 Year
  Sex: Female

DRUGS (9)
  1. INSULIN GLARGINE [Suspect]
     Indication: DIABETES MELLITUS
     Route: 058
     Dates: start: 2009
  2. COAPROVEL [Suspect]
     Indication: HYPERTENSION
     Dosage: DOSE:300/25MG
     Route: 048
  3. FOLIC ACID [Concomitant]
     Route: 048
  4. ACETYLSALICYLIC ACID [Concomitant]
     Route: 048
  5. LOVASTATIN [Concomitant]
     Route: 048
  6. INSULIN LISPRO [Concomitant]
     Route: 058
  7. AMLODIPINE [Concomitant]
     Route: 048
  8. B COMPLEX [Concomitant]
     Route: 048
  9. ASCORBIC ACID/FERROUS FUMARATE/FOLIC ACID [Concomitant]
     Route: 048

REACTIONS (1)
  - Retinal haemorrhage [Unknown]
